FAERS Safety Report 8152001-8 (Version None)
Quarter: 2012Q1

REPORT INFORMATION
  Report Type: 
  Country: None (occurrence: None)
  Receive Date: 20120214
  Receipt Date: 20120131
  Transmission Date: 20120608
  Serious: Yes (Hospitalization)
  Sender: FDA-Public Use
  Company Number: B0778996A

PATIENT
  Sex: Female

DRUGS (6)
  1. FUROSEMIDE [Concomitant]
  2. DIGOXIN [Suspect]
     Indication: ATRIAL FLUTTER
     Dosage: PER DAY, ORAL
     Route: 048
     Dates: start: 20111010, end: 20111010
  3. CANRENOATE POTASSIUM [Concomitant]
  4. VALSARTAN [Concomitant]
  5. WARFARIN SODIUM [Concomitant]
  6. METFORMIN HCL [Concomitant]

REACTIONS (2)
  - VOMITING [None]
  - TOXICITY TO VARIOUS AGENTS [None]
